FAERS Safety Report 4907274-9 (Version None)
Quarter: 2006Q1

REPORT INFORMATION
  Report Type: 
  Country: None (occurrence: None)
  Receive Date: 20060207
  Receipt Date: 20041213
  Transmission Date: 20060701
  Serious: Yes (Other)
  Sender: FDA-Public Use
  Company Number: 2004111689

PATIENT
  Age: 43 Year
  Sex: Female
  Weight: 108.8633 kg

DRUGS (4)
  1. NEURONTIN [Suspect]
     Indication: EPILEPSY
     Dosage: 2400 MG (600 MG, 4 IN 1 D)
     Dates: end: 20041110
  2. GABAPENTIN [Suspect]
     Indication: EPILEPSY
     Dosage: 2400 MG (600 MG, 4 IN D), ORAL
     Route: 048
     Dates: start: 20041111, end: 20041111
  3. KLONOPIN [Concomitant]
  4. ALL OTHER THERAPEUTIC PRODUCTS (ALL OTHER THERAPEUTIC PRODUCTS) [Concomitant]

REACTIONS (10)
  - ALOPECIA [None]
  - BONE DISORDER [None]
  - CONVULSION [None]
  - DISTURBANCE IN ATTENTION [None]
  - FEELING ABNORMAL [None]
  - HYPERSENSITIVITY [None]
  - MALAISE [None]
  - PAIN [None]
  - PAIN OF SKIN [None]
  - TREATMENT NONCOMPLIANCE [None]
